FAERS Safety Report 4885275-7 (Version None)
Quarter: 2005Q4

REPORT INFORMATION
  Report Type: 
  Country: None (occurrence: None)
  Receive Date: 20051220
  Receipt Date: 20051102
  Transmission Date: 20060501
  Serious: Yes (Other)
  Sender: FDA-Public Use
  Company Number: 423397

PATIENT
  Sex: Female

DRUGS (1)
  1. BONIVA [Suspect]
     Dosage: ORAL
     Route: 048

REACTIONS (5)
  - BONE PAIN [None]
  - CONFUSIONAL STATE [None]
  - CONTUSION [None]
  - OEDEMA [None]
  - SKIN EXFOLIATION [None]
